FAERS Safety Report 23327213 (Version 1)
Quarter: 2023Q4

REPORT INFORMATION
  Report Type: Spontaneous
  Country: US (occurrence: US)
  Receive Date: 20231221
  Receipt Date: 20231221
  Transmission Date: 20240110
  Serious: Yes (Hospitalization)
  Sender: FDA-Public Use
  Company Number: US-SA-SAC20231214000839

PATIENT

DRUGS (1)
  1. LARONIDASE [Suspect]
     Active Substance: LARONIDASE
     Indication: Mucopolysaccharidosis I
     Dosage: 29 (UNITS NOT PROVIDED),  QW
     Route: 042
     Dates: start: 20230510, end: 202312

REACTIONS (5)
  - Urticaria [Recovered/Resolved]
  - Swelling face [Recovered/Resolved]
  - Nasal congestion [Recovered/Resolved]
  - Ear swelling [Recovered/Resolved]
  - Swelling [Recovered/Resolved]

NARRATIVE: CASE EVENT DATE: 20230510
